FAERS Safety Report 9233805 (Version 1)
Quarter: 2013Q2

REPORT INFORMATION
  Report Type: Spontaneous
  Country: US (occurrence: US)
  Receive Date: 20130416
  Receipt Date: 20130416
  Transmission Date: 20140414
  Serious: No
  Sender: FDA-Public Use
  Company Number: US-BANPHARM-20120028

PATIENT
  Age: 93 Year
  Sex: Female
  Weight: 70.45 kg

DRUGS (2)
  1. ALEVE LIQUID GELS 220 MG [Suspect]
     Indication: ARTHRITIS
     Dosage: 2 DF, ONCE DAILY WITH FOOD
     Route: 048
     Dates: start: 20120717, end: 20120727
  2. HEART MEDICATIONS [Concomitant]

REACTIONS (1)
  - Drug ineffective [Unknown]
